FAERS Safety Report 24399480 (Version 1)
Quarter: 2024Q4

REPORT INFORMATION
  Report Type: Spontaneous
  Country: DE (occurrence: DE)
  Receive Date: 20241005
  Receipt Date: 20241005
  Transmission Date: 20250115
  Serious: Yes (Other)
  Sender: SANDOZ
  Company Number: DE-MLMSERVICE-20240919-PI198460-00128-1

PATIENT
  Age: 20 Year
  Sex: Female
  Weight: 34 kg

DRUGS (5)
  1. CYCLOPHOSPHAMIDE [Suspect]
     Active Substance: CYCLOPHOSPHAMIDE
     Indication: Ewing^s sarcoma recurrent
     Dosage: UNK
     Route: 065
     Dates: start: 20220806
  2. DOXORUBICIN [Suspect]
     Active Substance: DOXORUBICIN
     Indication: Ewing^s sarcoma recurrent
     Dosage: UNK
     Route: 065
     Dates: start: 20220806
  3. ETOPOSIDE [Suspect]
     Active Substance: ETOPOSIDE
     Indication: Ewing^s sarcoma recurrent
     Dosage: UNK
     Route: 065
     Dates: start: 20220806
  4. IFOSFAMIDE [Suspect]
     Active Substance: IFOSFAMIDE
     Indication: Ewing^s sarcoma recurrent
     Dosage: UNK
     Route: 065
     Dates: start: 20220806
  5. VINCRISTINE [Suspect]
     Active Substance: VINCRISTINE
     Indication: Ewing^s sarcoma recurrent
     Dosage: UNK
     Route: 065
     Dates: start: 20220806

REACTIONS (5)
  - Epilepsy [Unknown]
  - Neutropenic sepsis [Unknown]
  - Tumour haemorrhage [Unknown]
  - Pancytopenia [Unknown]
  - Headache [Unknown]

NARRATIVE: CASE EVENT DATE: 20220101
